FAERS Safety Report 18812334 (Version 3)
Quarter: 2021Q3

REPORT INFORMATION
  Report Type: Spontaneous
  Country: CA (occurrence: CA)
  Receive Date: 20210130
  Receipt Date: 20210709
  Transmission Date: 20211014
  Serious: Yes (Death, Other)
  Sender: FDA-Public Use
  Company Number: CA-UNITED THERAPEUTICS-UNT-2021-001213

PATIENT
  Age: 11 Year
  Sex: Male
  Weight: 25 kg

DRUGS (15)
  1. UNITUXIN [Suspect]
     Active Substance: DINUTUXIMAB
     Indication: NEUROBLASTOMA RECURRENT
     Dosage: UNK, CYCLICAL
     Route: 041
  2. FAMOTIDINE. [Suspect]
     Active Substance: FAMOTIDINE
     Indication: GASTRIC DISORDER
     Dosage: UNK
     Route: 065
     Dates: start: 2020
  3. IRINOTECAN [Suspect]
     Active Substance: IRINOTECAN
     Indication: NEUROBLASTOMA RECURRENT
     Dosage: UNK
     Route: 042
  4. UNITUXIN [Suspect]
     Active Substance: DINUTUXIMAB
     Indication: METASTASES TO LIVER
  5. UNITUXIN [Suspect]
     Active Substance: DINUTUXIMAB
     Indication: METASTASES TO BONE
  6. DEXAMETHASONE SODIUM PHOSPHATE. [Suspect]
     Active Substance: DEXAMETHASONE SODIUM PHOSPHATE
     Indication: NEOPLASM PROGRESSION
     Dosage: UNK
     Route: 065
     Dates: start: 2019
  7. LORAZEPAM. [Suspect]
     Active Substance: LORAZEPAM
     Indication: ANXIETY
     Dosage: UNK
     Route: 042
     Dates: start: 2019
  8. HYDROMORPHONE HYDROCHLORIDE. [Suspect]
     Active Substance: HYDROMORPHONE HYDROCHLORIDE
     Indication: PAIN
     Dosage: UNK
     Route: 065
     Dates: start: 2019
  9. TEMOZOLOMIDE. [Suspect]
     Active Substance: TEMOZOLOMIDE
     Indication: NEUROBLASTOMA RECURRENT
     Dosage: UNK
     Route: 065
  10. CANNABIDIOL [Suspect]
     Active Substance: CANNABIDIOL
     Indication: PAIN
     Dosage: UNK
     Route: 065
     Dates: start: 2020
  11. LORBRENA [Suspect]
     Active Substance: LORLATINIB
     Indication: NEUROBLASTOMA RECURRENT
     Dosage: 100 MG, QD (1 EVERY 1 DAY)
     Route: 048
     Dates: start: 2020
  12. FAMOTIDINE. [Suspect]
     Active Substance: FAMOTIDINE
     Indication: PROPHYLAXIS
  13. METHADONE HYDROCHLORIDE. [Suspect]
     Active Substance: METHADONE HYDROCHLORIDE
     Indication: PAIN
     Dosage: UNK
     Route: 065
     Dates: start: 2019
  14. GABAPENTIN. [Suspect]
     Active Substance: GABAPENTIN
     Indication: PAIN
     Dosage: UNK
     Route: 065
  15. CANNABIDIOL [Suspect]
     Active Substance: CANNABIDIOL
     Indication: NAUSEA

REACTIONS (12)
  - Leukocytosis [Unknown]
  - Neuroblastoma recurrent [Fatal]
  - Anaemia [Recovered/Resolved]
  - Retro-orbital neoplasm [Unknown]
  - Second primary malignancy [Fatal]
  - Malignant cranial nerve neoplasm [Unknown]
  - Metastases to spine [Unknown]
  - Thrombocytopenia [Not Recovered/Not Resolved]
  - Pallor [Unknown]
  - Metastases to liver [Unknown]
  - Nerve compression [Unknown]
  - Fatigue [Unknown]

NARRATIVE: CASE EVENT DATE: 2020
